FAERS Safety Report 4367147-X (Version None)
Quarter: 2004Q2

REPORT INFORMATION
  Report Type: 
  Country: None (occurrence: None)
  Receive Date: 20040524
  Receipt Date: 20040517
  Transmission Date: 20050107
  Serious: Yes (Hospitalization)
  Sender: FDA-Public Use
  Company Number: MK200405-0316-1

PATIENT
  Age: 70 Year
  Sex: Male

DRUGS (3)
  1. TECHNESCAN MAG3 [Suspect]
     Indication: SCAN
     Dosage: 11MCI, ONE TIME
     Dates: start: 20040517, end: 20040517
  2. LASIX [Concomitant]
  3. MORPHINE [Concomitant]

REACTIONS (4)
  - DYSPNOEA [None]
  - INCONTINENCE [None]
  - OROPHARYNGEAL SWELLING [None]
  - RASH [None]
